FAERS Safety Report 18281616 (Version 1)
Quarter: 2020Q3

REPORT INFORMATION
  Report Type: Spontaneous
  Country: ES (occurrence: ES)
  Receive Date: 20200918
  Receipt Date: 20200918
  Transmission Date: 20201103
  Serious: Yes (Hospitalization, Other)
  Sender: FDA-Public Use
  Company Number: ES-AUROBINDO-AUR-APL-2020-048350

PATIENT
  Age: 51 Year
  Sex: Female

DRUGS (6)
  1. DEXKETOPROFEN [Suspect]
     Active Substance: DEXKETOPROFEN
     Indication: ARTHRALGIA
     Dosage: UNK
     Route: 048
     Dates: start: 20151116
  2. METAMIZOLE [Suspect]
     Active Substance: METAMIZOLE
     Indication: ARTHRALGIA
     Dosage: UNK
     Route: 048
     Dates: start: 20151116
  3. IBUPROFEN. [Suspect]
     Active Substance: IBUPROFEN
     Indication: ARTHRALGIA
     Dosage: UNK
     Route: 048
     Dates: start: 20151116
  4. PARACETAMOL [Suspect]
     Active Substance: ACETAMINOPHEN
     Indication: ARTHRALGIA
     Dosage: UNK
     Route: 048
     Dates: start: 20151116
  5. IMIGRAN [Concomitant]
     Active Substance: SUMATRIPTAN SUCCINATE
     Indication: MIGRAINE
     Dosage: UNK
     Route: 048
  6. AMOXICILLIN. [Suspect]
     Active Substance: AMOXICILLIN
     Indication: ARTHRALGIA
     Dosage: UNK
     Route: 048
     Dates: start: 20151116

REACTIONS (1)
  - Agranulocytosis [Recovered/Resolved]

NARRATIVE: CASE EVENT DATE: 20151120
